FAERS Safety Report 13856008 (Version 2)
Quarter: 2017Q3

REPORT INFORMATION
  Report Type: Spontaneous
  Country: FR (occurrence: FR)
  Receive Date: 20170810
  Receipt Date: 20170815
  Transmission Date: 20171127
  Serious: Yes (Hospitalization)
  Sender: FDA-Public Use
  Company Number: FR-ALLERGAN-1733952US

PATIENT
  Age: 47 Year
  Sex: Female

DRUGS (4)
  1. HYPERIUM [Suspect]
     Active Substance: RILMENIDINE PHOSPHATE
     Indication: PRODUCT USED FOR UNKNOWN INDICATION
     Dosage: UNK
     Route: 048
     Dates: end: 201610
  2. DOLIPRANE [Concomitant]
     Active Substance: ACETAMINOPHEN
     Indication: PAIN
     Dosage: UNK UNK, PRN
     Route: 048
  3. NEBIVOLOL HCL - BP [Suspect]
     Active Substance: NEBIVOLOL
     Indication: HYPERTENSION
     Dosage: UNK
     Route: 048
     Dates: end: 201610
  4. IMUREL [Concomitant]
     Active Substance: AZATHIOPRINE SODIUM
     Indication: AUTOIMMUNE HEPATITIS
     Dosage: 50 MG, QD
     Route: 048
     Dates: start: 2009

REACTIONS (4)
  - Palmar-plantar erythrodysaesthesia syndrome [Unknown]
  - Rash [Recovered/Resolved]
  - Histone antibody positive [Unknown]
  - Localised oedema [Unknown]

NARRATIVE: CASE EVENT DATE: 201604
